FAERS Safety Report 8564523-6 (Version None)
Quarter: 2012Q3

REPORT INFORMATION
  Report Type: 
  Country: None (occurrence: None)
  Receive Date: 20120803
  Receipt Date: 20120726
  Transmission Date: 20120928
  Serious: Yes (Hospitalization)
  Sender: FDA-Public Use
  Company Number: JP-BRISTOL-MYERS SQUIBB COMPANY-16220782

PATIENT
  Age: 68 Year
  Sex: Female
  Weight: 53 kg

DRUGS (2)
  1. PARAPLATIN AQ [Suspect]
     Indication: OVARIAN CANCER
     Route: 041
     Dates: start: 20111024
  2. TAXOL [Suspect]
     Indication: OVARIAN CANCER
     Dosage: ROUTE :IV
     Route: 041
     Dates: start: 20111024

REACTIONS (2)
  - DRUG ERUPTION [None]
  - RENAL IMPAIRMENT [None]
